FAERS Safety Report 13963013 (Version 1)
Quarter: 2017Q3

REPORT INFORMATION
  Report Type: Spontaneous
  Country: RO (occurrence: RO)
  Receive Date: 20170913
  Receipt Date: 20170913
  Transmission Date: 20171128
  Serious: Yes (Other)
  Sender: FDA-Public Use
  Company Number: RO-SUN PHARMACEUTICAL INDUSTRIES LTD-2017R1-149686

PATIENT
  Age: 59 Year
  Sex: Female

DRUGS (3)
  1. PREDNISONE. [Suspect]
     Active Substance: PREDNISONE
     Indication: RHEUMATOID ARTHRITIS
     Dosage: 5 MG, DAILY
     Route: 065
  2. PREDNISONE. [Suspect]
     Active Substance: PREDNISONE
     Indication: RHEUMATOID ARTHRITIS
     Dosage: 10 MG, DAILY
     Route: 065
  3. METHOTREXATE. [Suspect]
     Active Substance: METHOTREXATE
     Indication: PRODUCT USED FOR UNKNOWN INDICATION
     Dosage: 20 MG, 1/WEEK
     Route: 065

REACTIONS (10)
  - Condition aggravated [Unknown]
  - Self-medication [Unknown]
  - Renal failure [Unknown]
  - Superinfection [Unknown]
  - Skin ulcer [Unknown]
  - Cataract [Recovered/Resolved]
  - Intervertebral discitis [Unknown]
  - Hyperuricaemia [Unknown]
  - Pseudomonas infection [Unknown]
  - Osteoporotic fracture [Recovered/Resolved]
